FAERS Safety Report 11137672 (Version 2)
Quarter: 2015Q2

REPORT INFORMATION
  Report Type: Spontaneous
  Country: TR (occurrence: PK)
  Receive Date: 20150526
  Receipt Date: 20150604
  Transmission Date: 20150821
  Serious: Yes (Death, Other)
  Sender: FDA-Public Use
  Company Number: PK-BAUSCH-BL-2015-013630

PATIENT
  Sex: Female
  Weight: 1.05 kg

DRUGS (2)
  1. PHENYLEPHRINE [Suspect]
     Active Substance: PHENYLEPHRINE\PHENYLEPHRINE HYDROCHLORIDE
     Indication: OPHTHALMOLOGICAL EXAMINATION
     Route: 061
  2. CYCLOPENTOLATE [Suspect]
     Active Substance: CYCLOPENTOLATE
     Indication: OPHTHALMOLOGICAL EXAMINATION
     Route: 061

REACTIONS (4)
  - Livedo reticularis [Unknown]
  - Cardiac arrest [Unknown]
  - Necrotising colitis [Fatal]
  - Tachycardia [Unknown]
